FAERS Safety Report 7111223-5 (Version None)
Quarter: 2010Q4

REPORT INFORMATION
  Report Type: 
  Country: None (occurrence: None)
  Receive Date: 20101118
  Receipt Date: 20091102
  Transmission Date: 20110411
  Serious: Yes (Hospitalization, Other)
  Sender: FDA-Public Use
  Company Number: US-PFIZER INC-2009292781

PATIENT
  Sex: Female

DRUGS (1)
  1. ZYVOX [Suspect]

REACTIONS (1)
  - CONVULSION [None]
